FAERS Safety Report 14380004 (Version 1)
Quarter: 2018Q1

REPORT INFORMATION
  Report Type: Spontaneous
  Country: None (occurrence: US)
  Receive Date: 20180112
  Receipt Date: 20180112
  Transmission Date: 20180509
  Serious: No
  Sender: FDA-Public Use
  Company Number: US-PUMA BIOTECHNOLOGY, LTD.-2017US012438

PATIENT

DRUGS (3)
  1. LOPERAMIDE [Concomitant]
     Active Substance: LOPERAMIDE
     Indication: PRODUCT USED FOR UNKNOWN INDICATION
  2. HERBAL NOS [Concomitant]
     Active Substance: HERBALS
     Indication: PRODUCT USED FOR UNKNOWN INDICATION
  3. NERLYNX [Suspect]
     Active Substance: NERATINIB
     Indication: HER-2 POSITIVE BREAST CANCER
     Dosage: 240 MG, DAILY
     Route: 048

REACTIONS (1)
  - Stomatitis [Unknown]
